FAERS Safety Report 19148213 (Version 1)
Quarter: 2021Q2

REPORT INFORMATION
  Report Type: Spontaneous
  Country: SI (occurrence: SI)
  Receive Date: 20210416
  Receipt Date: 20210416
  Transmission Date: 20210717
  Serious: Yes (Other)
  Sender: FDA-Public Use
  Company Number: NVSC2021SI076295

PATIENT
  Age: 45 Year
  Sex: Female

DRUGS (5)
  1. LETROZOL [Suspect]
     Active Substance: LETROZOLE
     Indication: BREAST CANCER
     Dosage: UNK
     Route: 065
     Dates: start: 201807
  2. EVEROLIMUS. [Suspect]
     Active Substance: EVEROLIMUS
     Indication: BREAST CANCER
     Dosage: UNK
     Route: 065
  3. CAPECITABINE. [Suspect]
     Active Substance: CAPECITABINE
     Indication: BREAST CANCER
     Dosage: UNK
     Route: 065
  4. OLAPARIB. [Concomitant]
     Active Substance: OLAPARIB
     Indication: PRODUCT USED FOR UNKNOWN INDICATION
     Dosage: UNK (2X300 MG)
     Route: 065
  5. RIBOCICLIB. [Suspect]
     Active Substance: RIBOCICLIB
     Indication: BREAST CANCER
     Dosage: UNK
     Route: 065
     Dates: start: 201807

REACTIONS (15)
  - Tissue infiltration [Recovering/Resolving]
  - Metastases to liver [Unknown]
  - Metastases to lymph nodes [Unknown]
  - Malignant peritoneal neoplasm [Unknown]
  - Oedema [Unknown]
  - Nausea [Unknown]
  - Malignant neoplasm progression [Recovering/Resolving]
  - Blood lactate dehydrogenase increased [Unknown]
  - Metastases to thorax [Unknown]
  - Blood alkaline phosphatase increased [Unknown]
  - Bone lesion [Recovering/Resolving]
  - Metastases to bone [Unknown]
  - Breast cancer [Recovering/Resolving]
  - Carbohydrate antigen 15-3 increased [Recovering/Resolving]
  - Skin hypertrophy [Unknown]

NARRATIVE: CASE EVENT DATE: 202004
